FAERS Safety Report 5621973-5 (Version None)
Quarter: 2008Q1

REPORT INFORMATION
  Report Type: 
  Country: None (occurrence: None)
  Receive Date: 20080211
  Receipt Date: 20080207
  Transmission Date: 20080703
  Serious: Yes (Hospitalization)
  Sender: FDA-Public Use
  Company Number: B0506937A

PATIENT
  Age: 85 Year
  Sex: Male
  Weight: 75 kg

DRUGS (6)
  1. DIGOXIN [Suspect]
     Indication: ATRIAL FIBRILLATION
     Route: 048
     Dates: end: 20080120
  2. BISOPROLOL [Suspect]
     Indication: ATRIAL FIBRILLATION
     Route: 048
     Dates: end: 20080120
  3. WARFARIN SODIUM [Concomitant]
     Indication: ATRIAL FIBRILLATION
     Route: 048
  4. FUROSEMIDE [Concomitant]
     Route: 048
  5. TRANDOLAPRIL [Concomitant]
     Route: 048
  6. CALCIPOTRIENE [Concomitant]
     Indication: PSORIASIS
     Route: 061

REACTIONS (2)
  - BRADYCARDIA [None]
  - SYNCOPE [None]
